FAERS Safety Report 10867091 (Version 3)
Quarter: 2015Q3

REPORT INFORMATION
  Report Type: Spontaneous
  Country: US (occurrence: US)
  Receive Date: 20150225
  Receipt Date: 20150723
  Transmission Date: 20151125
  Serious: Yes (Hospitalization)
  Sender: FDA-Public Use
  Company Number: US-BAYER-2015-027121

PATIENT
  Age: 31 Year
  Sex: Female
  Weight: 72.56 kg

DRUGS (2)
  1. ZOLOFT [Concomitant]
     Active Substance: SERTRALINE HYDROCHLORIDE
     Dosage: 25 MG, BID
     Route: 048
     Dates: start: 20130201
  2. MIRENA [Suspect]
     Active Substance: LEVONORGESTREL
     Indication: CONTRACEPTION
     Dosage: 20 MCG/24HR, CONT
     Route: 015
     Dates: start: 20090717, end: 20130228

REACTIONS (4)
  - Embedded device [None]
  - Injury [None]
  - Device difficult to use [None]
  - Pain [None]

NARRATIVE: CASE EVENT DATE: 20130213
